FAERS Safety Report 5695718-7 (Version None)
Quarter: 2008Q2

REPORT INFORMATION
  Report Type: 
  Country: None (occurrence: None)
  Receive Date: 20080403
  Receipt Date: 20080328
  Transmission Date: 20081010
  Serious: Yes (Hospitalization)
  Sender: FDA-Public Use
  Company Number: S08-USA-00832-01

PATIENT
  Age: 47 Year
  Sex: Female

DRUGS (3)
  1. LEXAPRO [Suspect]
     Indication: DEPRESSION
     Dosage: 10 MG OD PO
     Route: 048
     Dates: start: 20070101, end: 20080229
  2. FERROUS SULFATE TAB [Concomitant]
  3. YAZ [Concomitant]

REACTIONS (2)
  - APLASTIC ANAEMIA [None]
  - CONTUSION [None]
